FAERS Safety Report 8221478 (Version 2)
Quarter: 2013Q2

REPORT INFORMATION
  Report Type: Spontaneous
  Country: US (occurrence: US)
  Receive Date: 20111102
  Receipt Date: 20130521
  Transmission Date: 20140414
  Serious: No
  Sender: FDA-Public Use
  Company Number: US-PFIZER INC-2011263037

PATIENT
  Age: 83 Year
  Sex: Female
  Weight: 66.21 kg

DRUGS (4)
  1. CELEBREX [Suspect]
     Indication: OSTEOARTHRITIS
     Dosage: 200 MG, 1X/DAY
     Route: 048
     Dates: start: 20110724
  2. PROLIA [Suspect]
     Indication: OSTEOPOROSIS
     Dosage: UNK, TWICE A YEAR
     Dates: start: 20110707
  3. TRIAMTERENE/HYDROCHLOROTHIAZIDE [Concomitant]
     Indication: HYPERTENSION
     Dosage: TRIAMTERENE 37.5MG/HYDROCHLOROTHIAZIDE 25MG, DAILY
  4. AMLODIPINE BESILATE [Concomitant]
     Indication: HYPERTENSION
     Dosage: 5 MG, DAILY

REACTIONS (4)
  - Drug ineffective [Unknown]
  - Arthritis [Not Recovered/Not Resolved]
  - Malaise [Not Recovered/Not Resolved]
  - Lip swelling [Unknown]
